FAERS Safety Report 17783963 (Version 2)
Quarter: 2020Q2

REPORT INFORMATION
  Report Type: Spontaneous
  Country: US (occurrence: US)
  Receive Date: 20200513
  Receipt Date: 20200514
  Transmission Date: 20200714
  Serious: No
  Sender: FDA-Public Use
  Company Number: NVSC2020US130193

PATIENT
  Sex: Female

DRUGS (1)
  1. RECLAST [Suspect]
     Active Substance: ZOLEDRONIC ACID
     Indication: METASTASES TO BONE
     Dosage: 5 MG, (8 YEARS)
     Route: 065

REACTIONS (4)
  - Varicella [Unknown]
  - Immune system disorder [Unknown]
  - Influenza like illness [Unknown]
  - Osteopenia [Unknown]
